FAERS Safety Report 21402803 (Version 1)
Quarter: 2022Q3

REPORT INFORMATION
  Report Type: Spontaneous
  Country: US (occurrence: None)
  Receive Date: 20220930
  Receipt Date: 20220930
  Transmission Date: 20221027
  Serious: No
  Sender: FDA-Public Use
  Company Number: None

PATIENT
  Sex: Male

DRUGS (5)
  1. VIGABATRIN [Suspect]
     Active Substance: VIGABATRIN
     Indication: Seizure
  2. KEPPRA [Concomitant]
     Active Substance: LEVETIRACETAM
  3. DIAZEPAM [Concomitant]
     Active Substance: DIAZEPAM
  4. CLOBAZAM [Concomitant]
     Active Substance: CLOBAZAM
  5. PROAIR HFA [Concomitant]
     Active Substance: ALBUTEROL SULFATE

REACTIONS (2)
  - Seizure [None]
  - Drug ineffective [None]
